FAERS Safety Report 5138723-1 (Version None)
Quarter: 2006Q4

REPORT INFORMATION
  Report Type: 
  Country: None (occurrence: None)
  Receive Date: 20061030
  Receipt Date: 20061019
  Transmission Date: 20070319
  Serious: Yes (Other)
  Sender: FDA-Public Use
  Company Number: RU-ROCHE-467843

PATIENT
  Age: 37 Year
  Sex: Female

DRUGS (1)
  1. LARIAM [Suspect]
     Indication: MALARIA PROPHYLAXIS
     Dosage: ONCE ONE TABLET OF 250 MG.
     Route: 048
     Dates: start: 20061016, end: 20061016

REACTIONS (1)
  - GAMMA-GLUTAMYLTRANSFERASE INCREASED [None]
